FAERS Safety Report 6070920-3 (Version None)
Quarter: 2009Q1

REPORT INFORMATION
  Report Type: 
  Country: None (occurrence: None)
  Receive Date: 20090209
  Receipt Date: 20090128
  Transmission Date: 20090719
  Serious: Yes (Hospitalization)
  Sender: FDA-Public Use
  Company Number: FR-WYE-H07964809

PATIENT
  Sex: Female

DRUGS (15)
  1. INIPOMP [Suspect]
     Indication: GASTRODUODENAL ULCER
     Route: 048
     Dates: start: 20070112, end: 20070328
  2. LOGIFLOX [Suspect]
     Indication: URINARY TRACT INFECTION
     Route: 048
     Dates: start: 20070312, end: 20070315
  3. PREVISCAN [Suspect]
     Indication: PROPHYLAXIS
     Route: 048
     Dates: start: 20070112, end: 20070328
  4. OROKEN [Suspect]
     Indication: URINARY TRACT INFECTION
     Dosage: UNSPECIFIED
     Dates: start: 20070112, end: 20070324
  5. DAFALGAN [Suspect]
     Dosage: UNSPECIFIED
     Route: 048
     Dates: start: 20070112, end: 20070325
  6. SUCRALFATE [Suspect]
     Indication: GASTRODUODENAL ULCER
     Dosage: UNSPECIFIED
     Route: 048
     Dates: start: 20070112, end: 20070325
  7. SPIRONOLACTONE [Suspect]
     Indication: HYPERTENSION
     Dosage: UNSPECIFIED
     Route: 048
     Dates: start: 20070112, end: 20070329
  8. PENTASA [Suspect]
     Dosage: UNSPECIFIED
     Route: 048
     Dates: start: 20070112, end: 20070329
  9. BETASERC [Suspect]
     Indication: VERTIGO
     Dosage: UNSPECIFIED
     Route: 048
     Dates: start: 20070112, end: 20070329
  10. GENTAMICIN [Concomitant]
     Indication: URINARY TRACT INFECTION
     Dosage: UNSPECIFIED
     Route: 030
  11. NOVONORM [Concomitant]
     Indication: DIABETES MELLITUS
     Dosage: UNSPECIFIED
     Route: 048
  12. ANAFRANIL [Concomitant]
     Indication: DEPRESSION
     Route: 048
     Dates: start: 20070112
  13. TEMESTA [Concomitant]
     Indication: ANXIETY
     Dosage: UNSPECIFIED
     Route: 048
     Dates: start: 20070112
  14. INSULIN [Concomitant]
     Dosage: UNSPECIFIED
     Dates: start: 20070112
  15. BACTRIM DS [Suspect]
     Indication: URINARY TRACT INFECTION
     Route: 048
     Dates: start: 20070323, end: 20070323

REACTIONS (6)
  - CHILLS [None]
  - FIXED ERUPTION [None]
  - PYREXIA [None]
  - SKIN NECROSIS [None]
  - SKIN OEDEMA [None]
  - TOXIC SKIN ERUPTION [None]
